FAERS Safety Report 24168389 (Version 2)
Quarter: 2024Q4

REPORT INFORMATION
  Report Type: Spontaneous
  Country: GB (occurrence: GB)
  Receive Date: 20240802
  Receipt Date: 20241004
  Transmission Date: 20250115
  Serious: Yes (Death, Hospitalization, Other)
  Sender: TEVA
  Company Number: GB-AUROBINDO-AUR-APL-2024-034890

PATIENT
  Age: 64 Year
  Sex: Male

DRUGS (2)
  1. ZOPICLONE [Suspect]
     Active Substance: ZOPICLONE
     Indication: Product used for unknown indication
     Dosage: UNK (REPORTED AS UNSPECIFIED  ZOPICLONE TABLETS EVERY TWO  WEEK, WHICH IS 6 TIMES THE  LICENSED A...
     Route: 048
  2. MORPHINE [Suspect]
     Active Substance: MORPHINE
     Indication: Product used for unknown indication
     Dosage: UNK
     Route: 065

REACTIONS (7)
  - Toxicity to various agents [Fatal]
  - Drug abuse [Unknown]
  - Intentional overdose [Fatal]
  - Intentional product misuse [Unknown]
  - Drug dependence [Unknown]
  - Product monitoring error [Unknown]
  - Therapy cessation [Unknown]

NARRATIVE: CASE EVENT DATE: 20230207
